FAERS Safety Report 13894052 (Version 1)
Quarter: 2017Q3

REPORT INFORMATION
  Report Type: Spontaneous
  Country: US (occurrence: US)
  Receive Date: 20170822
  Receipt Date: 20170822
  Transmission Date: 20171127
  Serious: No
  Sender: FDA-Public Use
  Company Number: US-B.I. PHARMACEUTICALS,INC./RIDGEFIELD-2017-BI-045356

PATIENT
  Age: 83 Year
  Sex: Male

DRUGS (6)
  1. TYLENOL [Concomitant]
     Active Substance: ACETAMINOPHEN
     Indication: ARTHRITIS
     Dosage: 1 TAB BID;  FORM STRENGTH: 500MG; FORMULATION: TABLET
     Route: 048
  2. LANTUS [Concomitant]
     Active Substance: INSULIN GLARGINE
     Indication: DIABETES MELLITUS
     Dosage: 20UNIT DAILY
     Route: 058
     Dates: start: 2012
  3. ENTRESTO [Concomitant]
     Active Substance: SACUBITRIL\VALSARTAN
     Indication: CARDIAC FAILURE CONGESTIVE
     Dosage: 1 TABLET BID;  FORM STRENGTH: 97-103MG; FORMULATION: TABLET
     Route: 048
  4. CARVEDILOL. [Concomitant]
     Active Substance: CARVEDILOL
     Indication: HYPERTENSION
     Dosage: 1 TABLET BID;  FORM STRENGTH: 12.5 MG; FORMULATION: TABLET
     Route: 048
  5. TRADJENTA [Suspect]
     Active Substance: LINAGLIPTIN
     Indication: DIABETES MELLITUS
     Dosage: 1 TABLET DAILY;  FORM STRENGTH: 5 MG; FORMULATION: TABLET? ADMINISTRATION CORRECT? YES ?ACTION(S) TA
     Route: 048
     Dates: start: 20170807, end: 20170814
  6. ATORVASTATIN [Concomitant]
     Active Substance: ATORVASTATIN
     Indication: BLOOD CHOLESTEROL INCREASED
     Dosage: 1 TABLET DAILY;  FORM STRENGTH: 20MG; FORMULATION: TABLET
     Route: 048

REACTIONS (6)
  - Nasal pruritus [Not Recovered/Not Resolved]
  - Lacrimation increased [Not Recovered/Not Resolved]
  - Pharyngeal oedema [Not Recovered/Not Resolved]
  - Rhinorrhoea [Not Recovered/Not Resolved]
  - Lip swelling [Not Recovered/Not Resolved]
  - Swelling face [Not Recovered/Not Resolved]

NARRATIVE: CASE EVENT DATE: 20170809
